FAERS Safety Report 16027705 (Version 1)
Quarter: 2019Q1

REPORT INFORMATION
  Report Type: Spontaneous
  Country: US (occurrence: US)
  Receive Date: 20190304
  Receipt Date: 20190304
  Transmission Date: 20190418
  Serious: No
  Sender: FDA-Public Use
  Company Number: US-IMPAX LABORATORIES, LLC-2018-IPXL-00757

PATIENT
  Sex: Male
  Weight: 86 kg

DRUGS (6)
  1. STALEVO 75 [Concomitant]
     Indication: PARKINSON^S DISEASE
     Dosage: 1 TABLET, QID
     Route: 048
     Dates: start: 2012
  2. RYTARY [Suspect]
     Active Substance: CARBIDOPA\LEVODOPA
     Indication: PARKINSON^S DISEASE
     Dosage: 61.25/245MG, ONE CAPSULE, 4 TIMES A DAY
     Route: 048
     Dates: start: 201702
  3. RYTARY [Suspect]
     Active Substance: CARBIDOPA\LEVODOPA
     Dosage: 48.75/195MG AND 61.25/245MG ONE CAPSULE OF EACH 4 TIMES A DAY
     Route: 048
     Dates: start: 2018
  4. REQUIP [Concomitant]
     Active Substance: ROPINIROLE HYDROCHLORIDE
     Indication: PARKINSON^S DISEASE
     Dosage: 4 MG, QD
     Route: 048
     Dates: start: 2012
  5. AZILECT [Concomitant]
     Active Substance: RASAGILINE MESYLATE
     Indication: PARKINSON^S DISEASE
     Dosage: 1 MG, QD
     Route: 048
     Dates: start: 2012
  6. RIVASTIGMINE. [Concomitant]
     Active Substance: RIVASTIGMINE
     Indication: DEMENTIA
     Dosage: 4.6MG/24HOUR PATCH, QD
     Route: 061
     Dates: start: 201802

REACTIONS (1)
  - Hallucination, visual [Not Recovered/Not Resolved]

NARRATIVE: CASE EVENT DATE: 2017
